FAERS Safety Report 4692036-0 (Version None)
Quarter: 2005Q2

REPORT INFORMATION
  Report Type: 
  Country: None (occurrence: None)
  Receive Date: 20050616
  Receipt Date: 20050616
  Transmission Date: 20051028
  Serious: Yes (Life-Threatening, Hospitalization)
  Sender: FDA-Public Use
  Company Number: None

PATIENT
  Age: 7 Year
  Sex: Male
  Weight: 20 kg

DRUGS (6)
  1. CYTARABINE [Suspect]
     Dosage: 80 MG     IV
     Route: 042
     Dates: start: 20050224, end: 20050306
  2. GEMTUZUMAB [Suspect]
     Dosage: 2.4 MG    IV
     Route: 042
     Dates: start: 20050301, end: 20050301
  3. CYTARABINE [Concomitant]
  4. DAUNORUBICIN HCL [Concomitant]
  5. ETOPOSIDE [Concomitant]
  6. GMTZ [Concomitant]

REACTIONS (6)
  - BLOOD CULTURE POSITIVE [None]
  - FLUID OVERLOAD [None]
  - MUCOSAL INFLAMMATION [None]
  - PULMONARY OEDEMA [None]
  - RESPIRATORY DISTRESS [None]
  - STREPTOCOCCAL INFECTION [None]
